FAERS Safety Report 20058223 (Version 1)
Quarter: 2021Q4

REPORT INFORMATION
  Report Type: Spontaneous
  Country: US (occurrence: None)
  Receive Date: 20211111
  Receipt Date: 20211111
  Transmission Date: 20220304
  Serious: No
  Sender: FDA-Public Use
  Company Number: None

PATIENT
  Age: 44 Year
  Sex: Female
  Weight: 67.5 kg

DRUGS (1)
  1. NEUTROGENA ULTRA SHEER DRY TOUCH SUNSCREEN BROAD SPECTRUM [Suspect]
     Active Substance: AVOBENZONE\HOMOSALATE\OCTISALATE\OCTOCRYLENE\OXYBENZONE
     Indication: Prophylaxis against solar radiation
     Dates: start: 20210716, end: 20210716

REACTIONS (11)
  - Erythema [None]
  - Burning sensation [None]
  - Blister [None]
  - Dry skin [None]
  - Skin exfoliation [None]
  - Pain [None]
  - Pruritus [None]
  - Eye swelling [None]
  - Periorbital swelling [None]
  - Application site reaction [None]
  - Application site recall reaction [None]

NARRATIVE: CASE EVENT DATE: 20210716
